FAERS Safety Report 6025060-6 (Version None)
Quarter: 2008Q4

REPORT INFORMATION
  Report Type: 
  Country: None (occurrence: None)
  Receive Date: 20081230
  Receipt Date: 20081230
  Transmission Date: 20090506
  Serious: Yes (Hospitalization, Other)
  Sender: FDA-Public Use
  Company Number: None

PATIENT
  Age: 44 Year
  Sex: Female
  Weight: 66.6788 kg

DRUGS (3)
  1. YAZ [Suspect]
     Indication: MENORRHAGIA
     Dosage: 1 TAB DAILY PO
     Route: 048
     Dates: start: 20081101, end: 20081222
  2. YAZ [Suspect]
     Indication: PREMENSTRUAL SYNDROME
     Dosage: 1 TAB DAILY PO
     Route: 048
     Dates: start: 20081101, end: 20081222
  3. DROSPIRENONE + ETHINYL ESTRADIOL [Concomitant]

REACTIONS (5)
  - ABDOMINAL PAIN UPPER [None]
  - ANOREXIA [None]
  - FLANK PAIN [None]
  - NAUSEA [None]
  - PORTAL VEIN THROMBOSIS [None]
